FAERS Safety Report 17544463 (Version 2)
Quarter: 2021Q3

REPORT INFORMATION
  Report Type: Spontaneous
  Country: FR (occurrence: FR)
  Receive Date: 20200316
  Receipt Date: 20210824
  Transmission Date: 20211014
  Serious: Yes (Other)
  Sender: FDA-Public Use
  Company Number: FR-TAKEDA-2020TUS014316

PATIENT
  Age: 70 Year
  Sex: Female

DRUGS (8)
  1. VELCADE [Suspect]
     Active Substance: BORTEZOMIB
     Indication: POST PROCEDURAL HYPOTHYROIDISM
     Dosage: UNK
     Route: 058
     Dates: start: 201908
  2. LEVOTHYROX [Suspect]
     Active Substance: LEVOTHYROXINE
     Dosage: 100 MICROGRAM, QD
     Route: 065
     Dates: start: 1999
  3. VALACYCLOVIR [Concomitant]
     Active Substance: VALACYCLOVIR HYDROCHLORIDE
     Dosage: UNK
     Route: 065
  4. MAGNESIUM PIDOLATE [Concomitant]
     Active Substance: MAGNESIUM PIDOLATE
     Indication: PRODUCT USED FOR UNKNOWN INDICATION
     Dosage: UNK
     Route: 065
  5. DARZALEX [Concomitant]
     Active Substance: DARATUMUMAB
     Dosage: UNK
     Route: 065
  6. LEVOTHYROX [Suspect]
     Active Substance: LEVOTHYROXINE
     Indication: PLASMA CELL MYELOMA
     Dosage: 112.5 MICROGRAM
     Route: 065
  7. NEOFORDEX [Concomitant]
     Active Substance: DEXAMETHASONE ACETATE
     Dosage: UNK
     Route: 065
  8. LEVOTHYROX [Suspect]
     Active Substance: LEVOTHYROXINE
     Dosage: 88 MICROGRAM
     Route: 065

REACTIONS (9)
  - Plasma cell myeloma [Unknown]
  - Sleep disorder [Unknown]
  - Diarrhoea [Unknown]
  - Hyporeflexia [Unknown]
  - Feeling abnormal [Unknown]
  - Blood thyroid stimulating hormone decreased [Unknown]
  - Breast swelling [Unknown]
  - Dehydration [Unknown]
  - Erythema [Unknown]

NARRATIVE: CASE EVENT DATE: 201908
